FAERS Safety Report 12055984 (Version 1)
Quarter: 2016Q1

REPORT INFORMATION
  Report Type: Spontaneous
  Country: FR (occurrence: FR)
  Receive Date: 20160209
  Receipt Date: 20160209
  Transmission Date: 20160526
  Serious: Yes (Hospitalization)
  Sender: FDA-Public Use
  Company Number: FR-FRI-1000082448

PATIENT
  Age: 66 Year
  Sex: Female
  Weight: 80 kg

DRUGS (3)
  1. FERVEX [Concomitant]
     Active Substance: ACETAMINOPHEN\ASCORBIC ACID\PHENIRAMINE MALEATE
     Indication: NASOPHARYNGITIS
     Route: 048
     Dates: start: 20151015, end: 20151015
  2. DEPAMIDE [Suspect]
     Active Substance: VALPROMIDE
     Indication: DEPRESSION
     Dosage: 3 DF
     Route: 048
     Dates: start: 2012
  3. MILNACIPRAN [Suspect]
     Active Substance: MILNACIPRAN
     Indication: DEPRESSION
     Dosage: 4 DF
     Route: 048
     Dates: start: 2012, end: 20151116

REACTIONS (4)
  - Thunderclap headache [Recovered/Resolved]
  - Cerebral haemorrhage [Not Recovered/Not Resolved]
  - Carotid artery dissection [Not Recovered/Not Resolved]
  - Reversible cerebral vasoconstriction syndrome [Not Recovered/Not Resolved]

NARRATIVE: CASE EVENT DATE: 20151111
